FAERS Safety Report 16163386 (Version 1)
Quarter: 2019Q2

REPORT INFORMATION
  Report Type: Spontaneous
  Country: US (occurrence: US)
  Receive Date: 20190304
  Receipt Date: 20190304
  Transmission Date: 20190711
  Serious: Yes (Hospitalization)
  Sender: FDA-Public Use
  Company Number: None

PATIENT
  Sex: Male

DRUGS (2)
  1. VALSARTAN TAB 320MG [Suspect]
     Active Substance: VALSARTAN
     Indication: HYPERTENSION
     Route: 048
  2. METOPROLOL TAB 100 MG [Suspect]
     Active Substance: METOPROLOL
     Route: 048

REACTIONS (3)
  - Product substitution issue [None]
  - Therapeutic response decreased [None]
  - Hypertensive crisis [None]
